FAERS Safety Report 16264123 (Version 1)
Quarter: 2019Q2

REPORT INFORMATION
  Report Type: Spontaneous
  Country: US (occurrence: US)
  Receive Date: 20190327
  Receipt Date: 20190327
  Transmission Date: 20190711
  Serious: Yes (Hospitalization)
  Sender: FDA-Public Use
  Company Number: None

PATIENT
  Age: 62 Year
  Sex: Male

DRUGS (16)
  1. IPRATROPIUM/SOL ALBUTER [Concomitant]
  2. SPIRVIVA [Concomitant]
  3. CIALIS [Concomitant]
     Active Substance: TADALAFIL
  4. METHIMAZOLE. [Concomitant]
     Active Substance: METHIMAZOLE
  5. PULMICORT TURBUHALER [Concomitant]
     Active Substance: BUDESONIDE
  6. GENOPTROPIN [Concomitant]
  7. PREDNISONE. [Concomitant]
     Active Substance: PREDNISONE
  8. CARTIA [Concomitant]
  9. SPORANOX [Concomitant]
     Active Substance: ITRACONAZOLE
  10. TESTOST [Concomitant]
  11. NUCALA [Suspect]
     Active Substance: MEPOLIZUMAB
     Indication: FUNGAL INFECTION
     Route: 058
     Dates: start: 20180109
  12. PERFOROMIST [Concomitant]
     Active Substance: FORMOTEROL FUMARATE DIHYDRATE
  13. PROPRANOLOL [Concomitant]
     Active Substance: PROPRANOLOL HYDROCHLORIDE
  14. SINGULAIR [Concomitant]
     Active Substance: MONTELUKAST SODIUM
  15. COMBIVENT [Concomitant]
     Active Substance: ALBUTEROL SULFATE\IPRATROPIUM BROMIDE
  16. TERBUTALINE [Concomitant]
     Active Substance: TERBUTALINE

REACTIONS (2)
  - Hyperthyroidism [None]
  - Atrial fibrillation [None]
